FAERS Safety Report 4374326-4 (Version None)
Quarter: 2004Q2

REPORT INFORMATION
  Report Type: 
  Country: None (occurrence: None)
  Receive Date: 20040604
  Receipt Date: 20040521
  Transmission Date: 20050107
  Serious: Yes (Hospitalization)
  Sender: FDA-Public Use
  Company Number: 0400002EN0010P

PATIENT
  Age: 29 Year
  Sex: Male

DRUGS (1)
  1. ADAGEN [Suspect]
     Indication: ENZYME SUPPLEMENTATION
     Dosage: 875 U. 2X WEEKLY IM
     Route: 030
     Dates: start: 20030616

REACTIONS (1)
  - CEREBROVASCULAR ACCIDENT [None]
